FAERS Safety Report 14787856 (Version 1)
Quarter: 2018Q2

REPORT INFORMATION
  Report Type: Spontaneous
  Country: US (occurrence: US)
  Receive Date: 20180422
  Receipt Date: 20180422
  Transmission Date: 20180711
  Serious: No
  Sender: FDA-Public Use
  Company Number: US-TEVA-2018-US-883399

PATIENT
  Sex: Female

DRUGS (6)
  1. VAGIFEM [Suspect]
     Active Substance: ESTRADIOL
     Indication: PRURITUS
  2. VAGIFEM [Suspect]
     Active Substance: ESTRADIOL
     Indication: VULVOVAGINAL DRYNESS
     Route: 067
  3. VAGIFEM [Suspect]
     Active Substance: ESTRADIOL
     Indication: URINARY TRACT INFECTION
  4. YUVAFEM [Suspect]
     Active Substance: ESTRADIOL HEMIHYDRATE
     Route: 065
  5. ESTRADIOL. [Suspect]
     Active Substance: ESTRADIOL
     Route: 067
     Dates: start: 2018
  6. VAGIFEM [Suspect]
     Active Substance: ESTRADIOL
     Indication: DYSPAREUNIA

REACTIONS (4)
  - Vulvovaginal burning sensation [Recovered/Resolved]
  - Ill-defined disorder [Unknown]
  - Vulvovaginal inflammation [Unknown]
  - Pain [Unknown]

NARRATIVE: CASE EVENT DATE: 2018
